FAERS Safety Report 17240941 (Version 1)
Quarter: 2020Q1

REPORT INFORMATION
  Report Type: Spontaneous
  Country: US (occurrence: US)
  Receive Date: 20200107
  Receipt Date: 20200107
  Transmission Date: 20200409
  Serious: Yes (Hospitalization, Other)
  Sender: FDA-Public Use
  Company Number: US-B.I. PHARMACEUTICALS,INC./RIDGEFIELD-2020-US-000590

PATIENT
  Age: 8 Decade
  Sex: Female

DRUGS (1)
  1. PRADAXA [Suspect]
     Active Substance: DABIGATRAN ETEXILATE MESYLATE
     Indication: CARDIAC DISORDER
     Route: 065

REACTIONS (5)
  - Blood test abnormal [Unknown]
  - Metastases to lymph nodes [Unknown]
  - Breast cancer female [Unknown]
  - Renal impairment [Unknown]
  - Sepsis [Unknown]

NARRATIVE: CASE EVENT DATE: 201911
